FAERS Safety Report 6712808-8 (Version None)
Quarter: 2010Q2

REPORT INFORMATION
  Report Type: 
  Country: None (occurrence: None)
  Receive Date: 20100506
  Receipt Date: 20091013
  Transmission Date: 20101027
  Serious: No
  Sender: FDA-Public Use
  Company Number: A0811605A

PATIENT
  Age: 59 Year
  Sex: Female

DRUGS (2)
  1. AUGMENTIN '125' [Suspect]
     Indication: CHRONIC SINUSITIS
     Dosage: 875MG TWICE PER DAY
     Route: 048
     Dates: start: 20090901
  2. NASONEX [Concomitant]

REACTIONS (5)
  - ANXIETY [None]
  - DIARRHOEA [None]
  - FUNGAL INFECTION [None]
  - INSOMNIA [None]
  - TINNITUS [None]
